FAERS Safety Report 9703541 (Version 1)
Quarter: 2013Q4

REPORT INFORMATION
  Report Type: Report from Study
  Country: CA (occurrence: CA)
  Receive Date: 20131122
  Receipt Date: 20131122
  Transmission Date: 20140711
  Serious: Yes (Other)
  Sender: FDA-Public Use
  Company Number: CA-JNJFOC-20131109727

PATIENT
  Age: 73 Year
  Sex: Female
  Weight: 81.19 kg

DRUGS (3)
  1. REMICADE [Suspect]
     Indication: CROHN^S DISEASE
     Route: 042
     Dates: start: 201308
  2. REMICADE [Suspect]
     Indication: CROHN^S DISEASE
     Route: 042
     Dates: start: 201211, end: 2013
  3. IMURAN [Concomitant]
     Route: 065

REACTIONS (2)
  - Fistula [Recovering/Resolving]
  - Therapeutic response decreased [Recovering/Resolving]
